FAERS Safety Report 5302860-9 (Version None)
Quarter: 2007Q2

REPORT INFORMATION
  Report Type: 
  Country: None (occurrence: None)
  Receive Date: 20070419
  Receipt Date: 20070419
  Transmission Date: 20071010
  Serious: Yes (Disabling)
  Sender: FDA-Public Use
  Company Number: None

PATIENT
  Age: 44 Year
  Sex: Female

DRUGS (1)
  1. REBIF [Suspect]
     Indication: MULTIPLE SCLEROSIS
     Dosage: 44 MCG TIW SUB-Q
     Route: 058
     Dates: start: 20070117, end: 20070416

REACTIONS (2)
  - CONDITION AGGRAVATED [None]
  - RAYNAUD'S PHENOMENON [None]
